FAERS Safety Report 12757738 (Version 2)
Quarter: 2016Q3

REPORT INFORMATION
  Report Type: Report from Study
  Country: AU (occurrence: AU)
  Receive Date: 20160919
  Receipt Date: 20160923
  Transmission Date: 20161109
  Serious: Yes (Hospitalization, Disabling)
  Sender: FDA-Public Use
  Company Number: AU-ROCHE-1828855

PATIENT
  Age: 65 Year
  Sex: Male
  Weight: 92.2 kg

DRUGS (8)
  1. GASTROGEL (AUSTRALIA) [Concomitant]
     Indication: DYSPEPSIA
     Route: 065
     Dates: start: 20150901
  2. TAMSULOSIN HYDROCHLORIDE. [Concomitant]
     Active Substance: TAMSULOSIN HYDROCHLORIDE
     Indication: BENIGN PROSTATIC HYPERPLASIA
     Route: 065
     Dates: start: 20160623
  3. CARBOPLATIN. [Suspect]
     Active Substance: CARBOPLATIN
     Indication: NON-SMALL CELL LUNG CANCER STAGE IV
     Dosage: THE MOST RECENT DOSE OF CARBOPLATIN 483 MG PRIOR TO THE EVENT ONSET WAS ON 27/JAN/2016
     Route: 042
     Dates: start: 20151007
  4. DUTASTERIDE. [Concomitant]
     Active Substance: DUTASTERIDE
     Indication: BENIGN PROSTATIC HYPERPLASIA
     Route: 065
     Dates: start: 20160623
  5. ATEZOLIZUMAB [Suspect]
     Active Substance: ATEZOLIZUMAB
     Indication: NON-SMALL CELL LUNG CANCER STAGE IV
     Dosage: THE MOST RECENT DOSE OF ATEZOLIZUMAB 1200 MG PRIOR TO EVENT ONSET WAS ON 03/AUG/2016.
     Route: 042
     Dates: start: 20151007
  6. BEVACIZUMAB [Suspect]
     Active Substance: BEVACIZUMAB
     Indication: NON-SMALL CELL LUNG CANCER STAGE IV
     Dosage: THE MOST RECENT DOSE OF BEVACIZUMAB 1344.75 MG PRIOR TO THE EVENT ONSET WAS ON 03/AUG/2016
     Route: 042
     Dates: start: 20151007
  7. PACLITAXEL. [Suspect]
     Active Substance: PACLITAXEL
     Indication: NON-SMALL CELL LUNG CANCER STAGE IV
     Dosage: THE MOST RECENT DOSE OF PACLITAXEL 324 MG PRIOR TO EVENT ONSET WAS ON 27/JAN/2016
     Route: 042
     Dates: start: 20151007
  8. COLOXYL WITH SENNA [Concomitant]
     Active Substance: DOCUSATE\SENNOSIDES
     Indication: CONSTIPATION
     Route: 065
     Dates: start: 20150930

REACTIONS (1)
  - Optic neuropathy [Not Recovered/Not Resolved]

NARRATIVE: CASE EVENT DATE: 20160818
